FAERS Safety Report 14913674 (Version 2)
Quarter: 2018Q2

REPORT INFORMATION
  Report Type: Spontaneous
  Country: US (occurrence: US)
  Receive Date: 20180518
  Receipt Date: 20180613
  Transmission Date: 20180711
  Serious: No
  Sender: FDA-Public Use
  Company Number: US-HORIZON-ACT-0149-2018

PATIENT
  Age: 21 Year
  Sex: Male

DRUGS (1)
  1. ACTIMMUNE [Suspect]
     Active Substance: INTERFERON GAMMA-1B
     Indication: FIBROUS DYSPLASIA OF BONE
     Dosage: 100 ?G TIW / 12 TIMES IN 28 DAYS
     Route: 058
     Dates: start: 20180111

REACTIONS (4)
  - Burning sensation [Unknown]
  - Off label use [Unknown]
  - Asthenia [Unknown]
  - Malaise [Unknown]

NARRATIVE: CASE EVENT DATE: 20180111
